FAERS Safety Report 5191851-7 (Version None)
Quarter: 2006Q4

REPORT INFORMATION
  Report Type: 
  Country: None (occurrence: None)
  Receive Date: 20061227
  Receipt Date: 20061215
  Transmission Date: 20070319
  Serious: Yes (Other)
  Sender: FDA-Public Use
  Company Number: DE-JNJFOC-20060805240

PATIENT
  Sex: Male
  Weight: 34.2 kg

DRUGS (3)
  1. RISPERDAL [Suspect]
     Indication: IMPULSE-CONTROL DISORDER
     Route: 048
  2. RISPERDAL [Suspect]
     Indication: EMOTIONAL DISORDER
     Route: 048
  3. RISPERDAL [Suspect]
     Indication: CONDUCT DISORDER
     Route: 048

REACTIONS (2)
  - ELECTROCARDIOGRAM CHANGE [None]
  - ELECTROCARDIOGRAM ST SEGMENT ELEVATION [None]
